FAERS Safety Report 5869630-4 (Version None)
Quarter: 2008Q3

REPORT INFORMATION
  Report Type: 
  Country: None (occurrence: None)
  Receive Date: 20080904
  Receipt Date: 20080225
  Transmission Date: 20090109
  Serious: No
  Sender: FDA-Public Use
  Company Number: US-KINGPHARMUSA00001-K200800248

PATIENT

DRUGS (1)
  1. CYTOMEL [Suspect]
     Indication: HYPOTHYROIDISM
     Dosage: 75 MCG, QD
     Dates: start: 20070501

REACTIONS (4)
  - DRUG EFFECT DECREASED [None]
  - DRUG EFFECT INCREASED [None]
  - FATIGUE [None]
  - PANIC ATTACK [None]
